FAERS Safety Report 13367860 (Version 2)
Quarter: 2017Q2

REPORT INFORMATION
  Report Type: Report from Study
  Country: US (occurrence: US)
  Receive Date: 20170324
  Receipt Date: 20170403
  Transmission Date: 20170830
  Serious: Yes (Hospitalization)
  Sender: FDA-Public Use
  Company Number: US-GILEAD-2017-0263907

PATIENT
  Age: 10 Year
  Sex: Female

DRUGS (5)
  1. TADALAFIL [Concomitant]
     Active Substance: TADALAFIL
  2. FOLIC ACID. [Concomitant]
     Active Substance: FOLIC ACID
  3. FLINTSTONES COMPLETE               /02265901/ [Concomitant]
  4. OXYGEN. [Concomitant]
     Active Substance: OXYGEN
  5. AMBRISENTAN [Suspect]
     Active Substance: AMBRISENTAN
     Indication: PRODUCT USED FOR UNKNOWN INDICATION
     Dosage: 5 MG, QD
     Route: 048
     Dates: start: 20141002

REACTIONS (4)
  - Influenza [Not Recovered/Not Resolved]
  - Dehydration [Unknown]
  - Off label use [Not Recovered/Not Resolved]
  - Epistaxis [Recovered/Resolved]

NARRATIVE: CASE EVENT DATE: 20141002
